FAERS Safety Report 10964236 (Version 2)
Quarter: 2015Q2

REPORT INFORMATION
  Report Type: Spontaneous
  Country: US (occurrence: US)
  Receive Date: 20150329
  Receipt Date: 20150524
  Transmission Date: 20150821
  Serious: No
  Sender: FDA-Public Use
  Company Number: US-JNJFOC-20140414803

PATIENT
  Sex: Female
  Weight: 104.33 kg

DRUGS (5)
  1. FENTANYL TRANSDERMAL SYSTEM [Suspect]
     Active Substance: FENTANYL
     Indication: PRODUCT USED FOR UNKNOWN INDICATION
     Route: 062
  2. LISINOPRIL. [Concomitant]
     Active Substance: LISINOPRIL
     Indication: BLOOD PRESSURE
     Route: 048
  3. LORTAB [Concomitant]
     Active Substance: ACETAMINOPHEN\HYDROCODONE BITARTRATE
     Indication: BREAKTHROUGH PAIN
     Route: 048
  4. PANTOPRAZOLE [Concomitant]
     Active Substance: PANTOPRAZOLE SODIUM
     Indication: ULCER
     Route: 048
  5. DOXYLAMINE [Concomitant]
     Active Substance: DOXYLAMINE
     Indication: ABNORMAL FAECES
     Dosage: 8.6MG 2 TO 2 AND HALF TABLETS DAILY AT NIGHT
     Route: 048

REACTIONS (2)
  - Drug ineffective [Unknown]
  - Hypersensitivity [Unknown]
